FAERS Safety Report 11424705 (Version 2)
Quarter: 2015Q4

REPORT INFORMATION
  Report Type: Spontaneous
  Country: US (occurrence: US)
  Receive Date: 20150827
  Receipt Date: 20151104
  Transmission Date: 20160304
  Serious: Yes (Death, Hospitalization, Other)
  Sender: FDA-Public Use
  Company Number: US-GLAXOSMITHKLINE-US2015GSK123112

PATIENT
  Age: 99 Year
  Sex: Female

DRUGS (1)
  1. PROMACTA [Suspect]
     Active Substance: ELTROMBOPAG OLAMINE
     Indication: PLATELET COUNT DECREASED
     Dosage: UNK, QD
     Route: 048

REACTIONS (3)
  - Upper limb fracture [Unknown]
  - Death [Fatal]
  - Death [Fatal]

NARRATIVE: CASE EVENT DATE: 20150813
